FAERS Safety Report 10753997 (Version 1)
Quarter: 2015Q1

REPORT INFORMATION
  Report Type: Spontaneous
  Country: US (occurrence: None)
  Receive Date: 20150130
  Receipt Date: 20150130
  Transmission Date: 20150721
  Serious: Yes (Hospitalization)
  Sender: FDA-Public Use
  Company Number: None

PATIENT
  Age: 56 Year
  Sex: Female

DRUGS (1)
  1. AMPYRA [Suspect]
     Active Substance: DALFAMPRIDINE
     Indication: MULTIPLE SCLEROSIS
     Route: 048
     Dates: start: 201007

REACTIONS (8)
  - Abdominal pain [None]
  - Delirium [None]
  - Small intestinal obstruction [None]
  - Drug withdrawal syndrome [None]
  - Nausea [None]
  - Vomiting [None]
  - Clostridium difficile colitis [None]
  - Diarrhoea [None]

NARRATIVE: CASE EVENT DATE: 20130210
